FAERS Safety Report 10008825 (Version 2)
Quarter: 2014Q1

REPORT INFORMATION
  Report Type: Spontaneous
  Country: US (occurrence: US)
  Receive Date: 20140312
  Receipt Date: 20140312
  Transmission Date: 20141002
  Serious: No
  Sender: FDA-Public Use
  Company Number: US-INCYTE CORPORATION-2012IN000546

PATIENT
  Sex: Female
  Weight: 62.6 kg

DRUGS (2)
  1. JAKAFI [Suspect]
     Indication: MYELOFIBROSIS
     Dosage: 10 MG, BID
     Route: 048
     Dates: start: 20110906, end: 20120124
  2. JAKAFI [Suspect]
     Dosage: UNKNOWN
     Route: 048
     Dates: start: 20120125

REACTIONS (1)
  - Musculoskeletal chest pain [Not Recovered/Not Resolved]
